FAERS Safety Report 4702247-3 (Version None)
Quarter: 2005Q2

REPORT INFORMATION
  Report Type: 
  Country: None (occurrence: None)
  Receive Date: 20050629
  Receipt Date: 20050314
  Transmission Date: 20051028
  Serious: No
  Sender: FDA-Public Use
  Company Number: US-BRISTOL-MYERS SQUIBB COMPANY-12899977

PATIENT

DRUGS (2)
  1. REYATAZ [Suspect]
  2. NORVIR [Suspect]

REACTIONS (1)
  - DRUG INEFFECTIVE [None]
